FAERS Safety Report 17398154 (Version 3)
Quarter: 2020Q2

REPORT INFORMATION
  Report Type: Spontaneous
  Country: DE (occurrence: DE)
  Receive Date: 20200210
  Receipt Date: 20200511
  Transmission Date: 20200713
  Serious: Yes (Other)
  Sender: FDA-Public Use
  Company Number: DE-MYLANLABS-2020M1014257

PATIENT
  Age: 69 Year
  Sex: Female
  Weight: 80 kg

DRUGS (20)
  1. EZETIMIB MYLAN 10 MG TABLETTEN [Suspect]
     Active Substance: EZETIMIBE
     Indication: BLOOD CHOLESTEROL INCREASED
     Dosage: UNK
     Dates: start: 201905, end: 201911
  2. VALSARTAN MYLAN [Suspect]
     Active Substance: VALSARTAN
     Indication: HYPERTENSION
     Dosage: UNK
     Dates: end: 201809
  3. CEFUROX                            /00454602/ [Concomitant]
  4. EZETIMIBE. [Concomitant]
     Active Substance: EZETIMIBE
     Indication: BLOOD CHOLESTEROL INCREASED
     Dosage: UNK
     Dates: start: 201901, end: 201905
  5. OMEPRAZOL AL [Concomitant]
     Active Substance: OMEPRAZOLE
     Dosage: UNK
     Dates: start: 201903
  6. FOSFOMYCIN EBERTH [Concomitant]
     Dosage: UNK
     Dates: start: 201909
  7. FEXOFENADINE [Concomitant]
     Active Substance: FEXOFENADINE HYDROCHLORIDE
     Indication: HYPERSENSITIVITY
     Dosage: UNK
     Dates: start: 201706
  8. ZOSTEX [Concomitant]
     Active Substance: BRIVUDINE
     Dosage: UNK
     Dates: start: 201907
  9. RAMILICH [Concomitant]
     Active Substance: RAMIPRIL
     Dosage: UNK
     Dates: start: 202001
  10. EZETIMIBE. [Concomitant]
     Active Substance: EZETIMIBE
     Dosage: UNK
     Dates: start: 201911
  11. CLINDAMYCIN ARISTO [Concomitant]
     Active Substance: CLINDAMYCIN
     Dosage: UNK
     Dates: start: 201908
  12. NOVOPULMON [Concomitant]
     Active Substance: BUDESONIDE
     Dosage: UNK
     Dates: start: 202001
  13. VALSARTAN DURA 80 MG FILMTABLETTEN [Suspect]
     Active Substance: VALSARTAN
     Indication: HYPERTENSION
     Dosage: 40 MILLIGRAM, QD (0.5 TABLET)
     Dates: start: 2018
  14. PREDNI M [Concomitant]
     Dosage: UNK
     Dates: end: 201701
  15. COTRIM FORTE [Concomitant]
     Active Substance: SULFAMETHOXAZOLE\TRIMETHOPRIM
     Dosage: UNK
     Dates: start: 201909
  16. EZETIMIBE MYLAN [Concomitant]
     Active Substance: EZETIMIBE
     Indication: BLOOD CHOLESTEROL INCREASED
     Dosage: UNK
     Dates: start: 201905, end: 201911
  17. INFECTOCIPROCORT [Concomitant]
     Dosage: UNK
     Dates: end: 201701
  18. IBUFLAM                            /00109201/ [Concomitant]
     Active Substance: IBUPROFEN
     Dosage: UNK
     Dates: start: 201903
  19. EZETROL [Concomitant]
     Active Substance: EZETIMIBE
     Indication: HYPERCHOLESTEROLAEMIA
     Dosage: 10 MILLIGRAM (0-0) (TILL TODAY)
     Dates: start: 2002
  20. NOVAMINSULFON LICHTENSTEIN [Concomitant]
     Active Substance: METAMIZOLE SODIUM
     Dosage: UNK
     Dates: start: 201810

REACTIONS (4)
  - Impaired quality of life [Unknown]
  - Insomnia [Unknown]
  - Fear of disease [Unknown]
  - Mental impairment [Unknown]

NARRATIVE: CASE EVENT DATE: 2017
